FAERS Safety Report 14412126 (Version 1)
Quarter: 2018Q1

REPORT INFORMATION
  Report Type: Spontaneous
  Country: US (occurrence: US)
  Receive Date: 20180117
  Receipt Date: 20180117
  Transmission Date: 20180509
  Serious: Yes (Disabling)
  Sender: FDA-Public Use
  Company Number: None

PATIENT
  Age: 58 Year
  Sex: Female
  Weight: 53.1 kg

DRUGS (3)
  1. MULTI VITAMIN [Concomitant]
     Active Substance: VITAMINS
  2. VITAMIN C [Concomitant]
     Active Substance: ASCORBIC ACID
  3. LATANOPROST OPHTHALMIC SOLUTION 0.005% 125/2.5ML [Suspect]
     Active Substance: LATANOPROST
     Indication: GLAUCOMA
     Dosage: ?          QUANTITY:1 DROP(S);?
     Route: 047
     Dates: start: 20170701, end: 20171213

REACTIONS (2)
  - Product substitution issue [None]
  - Intraocular pressure increased [None]

NARRATIVE: CASE EVENT DATE: 20171214
